FAERS Safety Report 24605882 (Version 4)
Quarter: 2024Q4

REPORT INFORMATION
  Report Type: Report from Study
  Country: US (occurrence: US)
  Receive Date: 20241111
  Receipt Date: 20241225
  Transmission Date: 20250114
  Serious: Yes (Hospitalization, Congenital Anomaly, Other)
  Sender: ABBVIE
  Company Number: US-ABBVIE-5995111

PATIENT
  Sex: Female
  Weight: 4.9 kg

DRUGS (1)
  1. SKYRIZI [Suspect]
     Active Substance: RISANKIZUMAB-RZAA
     Indication: Maternal exposure timing unspecified
     Route: 064

REACTIONS (4)
  - Vascular rings and slings [Not Recovered/Not Resolved]
  - Foetal exposure during pregnancy [Unknown]
  - Atrial septal defect [Not Recovered/Not Resolved]
  - Patent ductus arteriosus [Not Recovered/Not Resolved]

NARRATIVE: CASE EVENT DATE: 20240925
